FAERS Safety Report 5834363-7 (Version None)
Quarter: 2008Q3

REPORT INFORMATION
  Report Type: 
  Country: None (occurrence: None)
  Receive Date: 20080731
  Receipt Date: 20080722
  Transmission Date: 20090109
  Serious: Yes (Other)
  Sender: FDA-Public Use
  Company Number: 2008SP015204

PATIENT
  Age: 74 Year
  Sex: Female

DRUGS (3)
  1. CLARITIN ALLERGY 24 HR REDITABS (10 MG) CONGESTION (CLARITIN) DR RECOM [Suspect]
     Indication: COUGH
     Dosage: 1 DF; ONCE; PO
     Route: 048
     Dates: start: 20070201, end: 20070201
  2. VERAPAMIL (CON.) [Concomitant]
  3. ACTONEL (CON.) /01026402/ (CON.) [Concomitant]

REACTIONS (1)
  - BLOOD PRESSURE INCREASED [None]
